FAERS Safety Report 10887125 (Version 3)
Quarter: 2015Q2

REPORT INFORMATION
  Report Type: Spontaneous
  Country: DE (occurrence: DE)
  Receive Date: 20150304
  Receipt Date: 20150605
  Transmission Date: 20150821
  Serious: Yes (Hospitalization, Other)
  Sender: FDA-Public Use
  Company Number: DE-PFIZER INC-2015014359

PATIENT
  Age: 76 Year
  Sex: Male
  Weight: 82 kg

DRUGS (5)
  1. LATANOPROST PFIZER [Suspect]
     Active Substance: LATANOPROST
     Indication: CATARACT
     Dosage: 1 GTT, 1XDAY PER EYE IN THE EVENING
     Route: 047
     Dates: end: 20150201
  2. RAMIPRIL. [Concomitant]
     Active Substance: RAMIPRIL
     Dosage: 0.5 DF, DAILY
  3. HERBAL NOS [Concomitant]
     Active Substance: HERBALS
     Dosage: UNK, AS NEEDED IN THE EVENING
  4. ATMADISC [Concomitant]
     Active Substance: FLUTICASONE PROPIONATE\SALMETEROL XINAFOATE
     Dosage: 50 MG/250 MG, 2X/DAY
  5. LATANOPROST PFIZER [Suspect]
     Active Substance: LATANOPROST
     Indication: GLAUCOMA
     Dosage: 1 GTT, 1XDAY PER EYE IN THE EVENING
     Route: 047
     Dates: start: 20141201

REACTIONS (12)
  - Atrial fibrillation [Unknown]
  - Supraventricular extrasystoles [Unknown]
  - Tricuspid valve incompetence [Unknown]
  - Blood cholesterol abnormal [Unknown]
  - Hypertension [Unknown]
  - Off label use [Unknown]
  - Flatulence [Unknown]
  - Hypertensive heart disease [Unknown]
  - Ventricular extrasystoles [Unknown]
  - Nausea [Unknown]
  - Aortic valve incompetence [Unknown]
  - Emphysema [Unknown]

NARRATIVE: CASE EVENT DATE: 20141231
